FAERS Safety Report 9052643 (Version 2)
Quarter: 2013Q2

REPORT INFORMATION
  Report Type: Spontaneous
  Country: PT (occurrence: PT)
  Receive Date: 20130207
  Receipt Date: 20130508
  Transmission Date: 20140414
  Serious: Yes (Other)
  Sender: FDA-Public Use
  Company Number: PT-ASTRAZENECA-2013SE06312

PATIENT
  Age: 29634 Day
  Sex: Male
  Weight: 69 kg

DRUGS (9)
  1. BRILIQUE [Suspect]
     Indication: THROMBOSIS PROPHYLAXIS
     Route: 048
     Dates: start: 20121110, end: 20121228
  2. BRILIQUE [Interacting]
     Indication: THROMBOSIS PROPHYLAXIS
     Dosage: 90 MG PER DAY, FIVE DAYS A WEEK
     Route: 048
  3. TROMALYT [Interacting]
     Indication: THROMBOSIS PROPHYLAXIS
     Route: 048
     Dates: end: 20121228
  4. TROMALYT [Interacting]
     Indication: THROMBOSIS PROPHYLAXIS
     Route: 048
  5. COAPROVEL [Concomitant]
     Indication: HYPERTENSION
     Dosage: 300 MG/ 12.5 MG, EVERYDAY
     Route: 048
  6. NEBIVOLOL [Concomitant]
     Indication: HYPERTENSION
     Route: 048
  7. JANUMET [Concomitant]
     Indication: TYPE 2 DIABETES MELLITUS
     Dosage: 1000 MG PLUS 50 MG TWO TIMES PER DAY
     Route: 048
  8. METFORMINA SANDOZ [Concomitant]
     Indication: TYPE 2 DIABETES MELLITUS
     Route: 048
  9. CRESTOR [Concomitant]
     Indication: PROPHYLAXIS
     Route: 048

REACTIONS (2)
  - Drug interaction [Unknown]
  - Melaena [Recovered/Resolved]
